FAERS Safety Report 7907154-0 (Version None)
Quarter: 2011Q4

REPORT INFORMATION
  Report Type: 
  Country: None (occurrence: None)
  Receive Date: 20111110
  Receipt Date: 20111104
  Transmission Date: 20120403
  Serious: Yes (Hospitalization, Other)
  Sender: FDA-Public Use
  Company Number: US-ABBOTT-11P-163-0871803-00

PATIENT
  Sex: Female
  Weight: 49.94 kg

DRUGS (8)
  1. PLAVIX [Concomitant]
     Indication: CEREBROVASCULAR ACCIDENT PROPHYLAXIS
  2. NORVASC [Concomitant]
     Indication: HYPERTENSION
  3. CRESTOR [Concomitant]
     Indication: BLOOD CHOLESTEROL INCREASED
  4. ASPIRIN [Concomitant]
     Indication: CARDIAC DISORDER
  5. ALLOPURINOL [Concomitant]
     Indication: GOUT
  6. JENUVIA [Concomitant]
     Indication: DIABETES MELLITUS
  7. HUMIRA [Suspect]
     Indication: RHEUMATOID ARTHRITIS
     Dates: start: 20050101, end: 20111003
  8. LOPRESSOR [Concomitant]
     Indication: HYPERTENSION

REACTIONS (6)
  - WEIGHT DECREASED [None]
  - LYMPHADENOPATHY [None]
  - UNRESPONSIVE TO STIMULI [None]
  - DEHYDRATION [None]
  - NAUSEA [None]
  - LYMPHOMA [None]
